FAERS Safety Report 6348524-4 (Version None)
Quarter: 2009Q3

REPORT INFORMATION
  Report Type: 
  Country: None (occurrence: None)
  Receive Date: 20090911
  Receipt Date: 20090831
  Transmission Date: 20100115
  Serious: Yes (Hospitalization, Other)
  Sender: FDA-Public Use
  Company Number: US-RANBAXY-2009US-27398

PATIENT

DRUGS (1)
  1. AMOXICILLIN [Suspect]
     Indication: URINARY TRACT INFECTION
     Dosage: UNK, UNK
     Route: 065

REACTIONS (7)
  - CONFUSIONAL STATE [None]
  - DECREASED APPETITE [None]
  - HALLUCINATION, AUDITORY [None]
  - PSYCHOTIC DISORDER [None]
  - SLEEP DISORDER [None]
  - THINKING ABNORMAL [None]
  - WEIGHT DECREASED [None]
